FAERS Safety Report 8574532-9 (Version None)
Quarter: 2012Q3

REPORT INFORMATION
  Report Type: 
  Country: None (occurrence: None)
  Receive Date: 20120806
  Receipt Date: 20120727
  Transmission Date: 20120928
  Serious: Yes (Other)
  Sender: FDA-Public Use
  Company Number: GB-TEVA-351747ISR

PATIENT
  Age: 36 Year
  Sex: Female
  Weight: 57.15 kg

DRUGS (2)
  1. PROPRANOLOL [Suspect]
     Indication: PALPITATIONS
     Dosage: SUSTAINED
     Route: 048
     Dates: start: 20120622, end: 20120716
  2. ANTIDEPRESSANT NOS [Concomitant]

REACTIONS (2)
  - SUICIDAL IDEATION [None]
  - DEPRESSION [None]
